FAERS Safety Report 5531438-7 (Version None)
Quarter: 2007Q4

REPORT INFORMATION
  Report Type: 
  Country: None (occurrence: None)
  Receive Date: 20071128
  Receipt Date: 20071128
  Transmission Date: 20080405
  Serious: Yes (Hospitalization, Other)
  Sender: FDA-Public Use
  Company Number: None

PATIENT
  Age: 55 Year
  Sex: Female
  Weight: 54.8852 kg

DRUGS (2)
  1. CHANTIX [Suspect]
     Indication: SMOKING CESSATION THERAPY
     Dosage: STARTER KIT AS DIRECTED
     Dates: start: 20070604, end: 20070611
  2. CHANTIX [Suspect]
     Indication: SMOKING CESSATION THERAPY
     Dosage: FULL DOSE AS DIRECTED
     Dates: start: 20070612, end: 20070622

REACTIONS (5)
  - BALANCE DISORDER [None]
  - BREATH HOLDING [None]
  - DIZZINESS [None]
  - FEELING ABNORMAL [None]
  - TENSION [None]
